FAERS Safety Report 8251565-3 (Version None)
Quarter: 2012Q2

REPORT INFORMATION
  Report Type: 
  Country: None (occurrence: None)
  Receive Date: 20120402
  Receipt Date: 20120319
  Transmission Date: 20120825
  Serious: Yes (Other)
  Sender: FDA-Public Use
  Company Number: DE-TEVA-330625GER

PATIENT
  Age: 70 Year
  Sex: Female

DRUGS (6)
  1. TORSEMIDE [Suspect]
     Route: 065
  2. BISOPROLOL FUMARATE [Suspect]
     Route: 065
  3. LOSARTAN POTASSIUM [Suspect]
     Indication: AORTIC VALVE REPLACEMENT
     Route: 065
  4. AMIODARONE HCL [Suspect]
     Indication: AORTIC VALVE REPLACEMENT
     Route: 065
  5. PHENPROCOUMON [Suspect]
     Indication: AORTIC VALVE REPLACEMENT
     Route: 065
  6. ASPIRIN [Concomitant]
     Route: 065

REACTIONS (1)
  - CUTANEOUS LUPUS ERYTHEMATOSUS [None]
